FAERS Safety Report 15654932 (Version 1)
Quarter: 2018Q4

REPORT INFORMATION
  Report Type: Spontaneous
  Country: US (occurrence: US)
  Receive Date: 20181126
  Receipt Date: 20181126
  Transmission Date: 20190205
  Serious: No
  Sender: FDA-Public Use
  Company Number: US-BIOGEN-2018BI00658220

PATIENT
  Sex: Female

DRUGS (1)
  1. AVONEX [Suspect]
     Active Substance: INTERFERON BETA-1A
     Indication: MULTIPLE SCLEROSIS
     Route: 065
     Dates: start: 19970101

REACTIONS (6)
  - Influenza like illness [Unknown]
  - Multiple sclerosis relapse [Unknown]
  - Hemiparesis [Unknown]
  - Carotid artery disease [Unknown]
  - Pain [Unknown]
  - Cerebral atrophy [Unknown]
